FAERS Safety Report 6228372-6 (Version None)
Quarter: 2009Q2

REPORT INFORMATION
  Report Type: 
  Country: None (occurrence: None)
  Receive Date: 20090612
  Receipt Date: 20090602
  Transmission Date: 20091009
  Serious: Yes (Hospitalization)
  Sender: FDA-Public Use
  Company Number: BR-ELI_LILLY_AND_COMPANY-BR200906000731

PATIENT
  Age: 91 Year
  Sex: Female
  Weight: 70 kg

DRUGS (2)
  1. FORTEO [Suspect]
     Indication: OSTEOPOROSIS
     Dosage: UNK, DAILY (1/D)
     Route: 058
     Dates: start: 20090201
  2. CARVEDILOL [Concomitant]
     Indication: ARRHYTHMIA
     Dosage: 10 MG, DAILY (1/D)
     Route: 048

REACTIONS (1)
  - INFLUENZA [None]
